FAERS Safety Report 9456647 (Version 1)
Quarter: 2013Q3

REPORT INFORMATION
  Report Type: Spontaneous
  Country: MX (occurrence: MX)
  Receive Date: 20130813
  Receipt Date: 20130813
  Transmission Date: 20140515
  Serious: Yes (Hospitalization)
  Sender: FDA-Public Use
  Company Number: MX-B.I. PHARMACEUTICALS,INC./RIDGEFIELD-2013-MX-00254MX

PATIENT
  Age: 69 Year
  Sex: Female
  Weight: 73 kg

DRUGS (3)
  1. MICARDIS DUO [Suspect]
     Indication: HYPERTENSION
     Dosage: 80 T / 5 A 1 DAILY
     Route: 048
     Dates: start: 201306
  2. MAVIGLIN [Concomitant]
     Indication: DIABETES MELLITUS
     Dosage: 500MG MET / 5 MG 1 TAB IN THE MORNING
     Route: 048
     Dates: start: 201302
  3. ASPIRINA PROTECT [Concomitant]
     Indication: CARDIOVASCULAR EVENT PROPHYLAXIS
     Dosage: 1 TAB PER DAY
     Route: 048
     Dates: start: 2004

REACTIONS (1)
  - Onychomycosis [Recovered/Resolved]
